FAERS Safety Report 18621753 (Version 1)
Quarter: 2020Q4

REPORT INFORMATION
  Report Type: Spontaneous
  Country: US (occurrence: US)
  Receive Date: 20201216
  Receipt Date: 20201216
  Transmission Date: 20210114
  Serious: No
  Sender: FDA-Public Use
  Company Number: US-ESPERIONTHERAPEUTICS-2020USA00025

PATIENT
  Sex: Male

DRUGS (2)
  1. NEXLIZET [Suspect]
     Active Substance: BEMPEDOIC ACID\EZETIMIBE
     Indication: PRODUCT USED FOR UNKNOWN INDICATION
     Dosage: 180/10MG, QD
     Route: 048
  2. ZETIA [Concomitant]
     Active Substance: EZETIMIBE

REACTIONS (3)
  - Feeling abnormal [Unknown]
  - Libido decreased [Unknown]
  - Fatigue [Unknown]
